FAERS Safety Report 9552630 (Version 1)
Quarter: 2013Q3

REPORT INFORMATION
  Report Type: Spontaneous
  Country: US (occurrence: US)
  Receive Date: 20130925
  Receipt Date: 20130925
  Transmission Date: 20140515
  Serious: No
  Sender: FDA-Public Use
  Company Number: US-PURDUE-USA-2012-0088930

PATIENT
  Age: 63 Year
  Sex: Female
  Weight: 76.64 kg

DRUGS (2)
  1. MORPHINE SULFATE EXTENDED-RELEASE TABLETS (WATSON 74-862) [Suspect]
     Indication: BACK PAIN
     Dosage: 40 MG, BID
     Route: 048
     Dates: start: 20120522
  2. MORPHINE SULFATE EXTENDED RELEASE [Suspect]
     Dosage: 40 MG, BID
     Route: 048
     Dates: start: 2008, end: 20120521

REACTIONS (3)
  - Drug screen negative [Not Recovered/Not Resolved]
  - Drug ineffective [Not Recovered/Not Resolved]
  - Product quality issue [Not Recovered/Not Resolved]
